FAERS Safety Report 8798711 (Version 2)
Quarter: 2015Q1

REPORT INFORMATION
  Report Type: Report from Study
  Country: US (occurrence: US)
  Receive Date: 20120920
  Receipt Date: 20150323
  Transmission Date: 20150721
  Serious: Yes (Death)
  Sender: FDA-Public Use
  Company Number: US-ROCHE-1123182

PATIENT
  Sex: Female

DRUGS (23)
  1. GEMZAR [Concomitant]
     Active Substance: GEMCITABINE HYDROCHLORIDE
     Indication: BREAST CANCER
     Route: 011
  2. BENADRYL [Concomitant]
     Active Substance: DIPHENHYDRAMINE HYDROCHLORIDE
     Route: 042
  3. SENNA [Concomitant]
     Active Substance: SENNA LEAF\SENNOSIDES\SENNOSIDES A AND B
     Dosage: 2 TABLETS
     Route: 048
  4. DIFLUCAN [Concomitant]
     Active Substance: FLUCONAZOLE
     Route: 048
  5. BISACODYL. [Concomitant]
     Active Substance: BISACODYL
     Dosage: 2 TABLETS
     Route: 048
  6. OXYCONTIN [Concomitant]
     Active Substance: OXYCODONE HYDROCHLORIDE
     Route: 065
  7. TRICOR [Suspect]
     Active Substance: FENOFIBRATE
     Indication: PRODUCT USED FOR UNKNOWN INDICATION
     Route: 065
  8. OXYCODONE [Concomitant]
     Active Substance: OXYCODONE
     Indication: ABDOMINAL DISTENSION
  9. ZOMETA [Concomitant]
     Active Substance: ZOLEDRONIC ACID
     Route: 042
  10. AVASTIN [Suspect]
     Active Substance: BEVACIZUMAB
     Indication: BREAST CANCER
     Route: 042
     Dates: start: 20081029
  11. DEXAMETHASONE. [Concomitant]
     Active Substance: DEXAMETHASONE
     Route: 042
  12. PEGFILGRASTIM [Concomitant]
     Active Substance: PEGFILGRASTIM
     Route: 065
  13. HERCEPTIN [Suspect]
     Active Substance: TRASTUZUMAB
     Indication: BREAST CANCER
     Route: 042
  14. XELODA [Suspect]
     Active Substance: CAPECITABINE
     Indication: BREAST CANCER
     Route: 065
  15. TYKERB [Suspect]
     Active Substance: LAPATINIB DITOSYLATE
     Indication: PRODUCT USED FOR UNKNOWN INDICATION
     Route: 065
  16. MAGNEVIST [Concomitant]
     Active Substance: GADOPENTETATE DIMEGLUMINE
     Route: 065
  17. DECADRON [Concomitant]
     Active Substance: DEXAMETHASONE
     Route: 065
  18. ABRAXANE [Suspect]
     Active Substance: PACLITAXEL
     Indication: PRODUCT USED FOR UNKNOWN INDICATION
     Route: 065
  19. DIAZEPAM. [Concomitant]
     Active Substance: DIAZEPAM
     Route: 048
  20. ALOXI [Concomitant]
     Active Substance: PALONOSETRON HYDROCHLORIDE
     Route: 042
  21. DICHLOROACETIC ACID [Concomitant]
     Active Substance: DICHLOROACETIC ACID
     Route: 042
  22. DOCUSATE SODIUM. [Concomitant]
     Active Substance: DOCUSATE SODIUM
     Route: 065
  23. TAXOTERE [Concomitant]
     Active Substance: DOCETAXEL
     Route: 065

REACTIONS (31)
  - Constipation [Unknown]
  - Nausea [Unknown]
  - Dacryostenosis acquired [Unknown]
  - Neuropathy peripheral [Unknown]
  - Mucosal inflammation [Unknown]
  - Death [Fatal]
  - Discomfort [Unknown]
  - Paraesthesia [Unknown]
  - Physical disability [Unknown]
  - Neutropenia [Unknown]
  - Weight decreased [Unknown]
  - Asthenia [Unknown]
  - Metastases to liver [Unknown]
  - Oral candidiasis [Unknown]
  - Abdominal distension [Unknown]
  - Fatigue [Unknown]
  - Dehydration [Unknown]
  - Loss of proprioception [Unknown]
  - Dizziness [Unknown]
  - Arthralgia [Unknown]
  - Lacrimation increased [Unknown]
  - Metastases to central nervous system [Unknown]
  - Hypertension [Unknown]
  - Insomnia [Unknown]
  - Balance disorder [Unknown]
  - Hypoxia [Unknown]
  - Alopecia [Unknown]
  - Hyporeflexia [Unknown]
  - Abdominal pain [Unknown]
  - Hypoaesthesia [Unknown]
  - Diarrhoea [Unknown]
